FAERS Safety Report 16884578 (Version 3)
Quarter: 2019Q4

REPORT INFORMATION
  Report Type: Report from Study
  Country: BE (occurrence: BE)
  Receive Date: 20191004
  Receipt Date: 20191011
  Transmission Date: 20200122
  Serious: Yes (Other)
  Sender: FDA-Public Use
  Company Number: BE-PFIZER INC-2019420834

PATIENT
  Age: 60 Year
  Sex: Male

DRUGS (4)
  1. NEUPOGEN [Suspect]
     Active Substance: FILGRASTIM
     Route: 065
  2. ICLUSIG [Suspect]
     Active Substance: PONATINIB
     Dosage: UNK
     Route: 048
  3. CELLCEPT [Suspect]
     Active Substance: MYCOPHENOLATE MOFETIL\MYCOPHENOLATE MOFETIL HYDROCHLORIDE
  4. RAPAMUNE [Suspect]
     Active Substance: SIROLIMUS
     Route: 065

REACTIONS (12)
  - Bone pain [Recovered/Resolved]
  - Hypoxia [Not Recovered/Not Resolved]
  - Drug eruption [Recovered/Resolved]
  - Interstitial lung disease [Recovered/Resolved]
  - Campylobacter gastroenteritis [Recovered/Resolved]
  - Oedema peripheral [Recovered/Resolved]
  - Lacrimation increased [Recovered/Resolved]
  - Visual acuity reduced [Not Recovered/Not Resolved]
  - Thrombotic microangiopathy [Recovered/Resolved]
  - Skin lesion [Recovered/Resolved]
  - Headache [Recovered/Resolved]
  - Oedema [Recovered/Resolved]

NARRATIVE: CASE EVENT DATE: 20190321
